FAERS Safety Report 13954488 (Version 1)
Quarter: 2017Q3

REPORT INFORMATION
  Report Type: Spontaneous
  Country: US (occurrence: US)
  Receive Date: 20170910
  Receipt Date: 20170910
  Transmission Date: 20171128
  Serious: Yes (Life-Threatening)
  Sender: FDA-Public Use
  Company Number: None

PATIENT
  Age: 46 Year
  Sex: Male
  Weight: 85.5 kg

DRUGS (1)
  1. BUPRENORPHINE TABLETS [Suspect]
     Active Substance: BUPRENORPHINE
     Indication: DRUG USE DISORDER
     Dates: start: 20170802, end: 20170906

REACTIONS (2)
  - Dependence [None]
  - Intentional product use issue [None]

NARRATIVE: CASE EVENT DATE: 20170904
